FAERS Safety Report 20380886 (Version 5)
Quarter: 2022Q1

REPORT INFORMATION
  Report Type: Report from Study
  Country: CA (occurrence: CA)
  Receive Date: 20220127
  Receipt Date: 20220225
  Transmission Date: 20220423
  Serious: Yes (Hospitalization)
  Sender: FDA-Public Use
  Company Number: CA-JNJFOC-20220140435

PATIENT
  Age: 11 Year
  Sex: Male
  Weight: 42 kg

DRUGS (2)
  1. REMICADE [Suspect]
     Active Substance: INFLIXIMAB
     Indication: Crohn^s disease
     Dosage: STAT DOSE WHILE IN HOSPITAL
     Route: 042
     Dates: start: 20211214
  2. REMICADE [Suspect]
     Active Substance: INFLIXIMAB
     Dosage: 3RD INDUCTION DOSE OF REMICADE ON 24-JAN-2022 OF 300 MG
     Route: 042

REACTIONS (9)
  - Malaise [Recovering/Resolving]
  - Rectal haemorrhage [Recovering/Resolving]
  - Vascular pain [Unknown]
  - Nausea [Unknown]
  - Frequent bowel movements [Unknown]
  - Diarrhoea [Unknown]
  - Abdominal pain [Unknown]
  - Defaecation urgency [Unknown]
  - Drug ineffective [Unknown]

NARRATIVE: CASE EVENT DATE: 20220101
